FAERS Safety Report 6232767-4 (Version None)
Quarter: 2009Q2

REPORT INFORMATION
  Report Type: 
  Country: None (occurrence: None)
  Receive Date: 20090617
  Receipt Date: 20090318
  Transmission Date: 20091009
  Serious: No
  Sender: FDA-Public Use
  Company Number: US-BAYER-200916098NA

PATIENT
  Sex: Female

DRUGS (2)
  1. ANGELIQ [Suspect]
     Indication: DRUG USE FOR UNKNOWN INDICATION
     Route: 048
     Dates: start: 20081101
  2. SYNTHROID [Concomitant]

REACTIONS (2)
  - EYELID IRRITATION [None]
  - SKIN IRRITATION [None]
